FAERS Safety Report 4660326-3 (Version None)
Quarter: 2005Q2

REPORT INFORMATION
  Report Type: 
  Country: None (occurrence: None)
  Receive Date: 20050427
  Receipt Date: 20050329
  Transmission Date: 20051028
  Serious: No
  Sender: FDA-Public Use
  Company Number: 211713

PATIENT
  Age: 58 Year
  Sex: Female

DRUGS (6)
  1. XOLAIR [Suspect]
     Indication: ASTHMA
     Dosage: 150 MG, 1/MONTH
     Dates: start: 20040701, end: 20050101
  2. PRILOSEC [Concomitant]
  3. FLOVENT [Concomitant]
  4. FOSAMAX [Concomitant]
  5. PAXIL [Concomitant]
  6. LEVOXYL [Concomitant]

REACTIONS (3)
  - DIFFICULTY IN WALKING [None]
  - MUSCLE SPASMS [None]
  - PAIN IN EXTREMITY [None]
